FAERS Safety Report 6911874-4 (Version None)
Quarter: 2010Q3

REPORT INFORMATION
  Report Type: 
  Country: None (occurrence: None)
  Receive Date: 20100806
  Receipt Date: 20071001
  Transmission Date: 20110219
  Serious: No
  Sender: FDA-Public Use
  Company Number: US-PFIZER INC-2007067910

PATIENT
  Sex: Female
  Weight: 58.2 kg

DRUGS (2)
  1. DETROL LA [Suspect]
     Indication: HYPERTONIC BLADDER
  2. ACETAMINOPHEN [Concomitant]

REACTIONS (1)
  - NOCTURIA [None]
